FAERS Safety Report 10747939 (Version 2)
Quarter: 2015Q2

REPORT INFORMATION
  Report Type: Report from Study
  Country: US (occurrence: None)
  Receive Date: 20150120
  Receipt Date: 20150420
  Transmission Date: 20150821
  Serious: No
  Sender: FDA-Public Use
  Company Number: AEGR001022

PATIENT
  Age: 74 Year
  Sex: Female
  Weight: 62.6 kg

DRUGS (9)
  1. JUXTAPID [Suspect]
     Active Substance: LOMITAPIDE MESYLATE
     Indication: TYPE IIA HYPERLIPIDAEMIA
     Route: 048
     Dates: start: 20141207
  2. ASPIRIN (ACETYLSALICYLIC ACID) [Concomitant]
     Active Substance: ASPIRIN
  3. LOSARTAN [Concomitant]
     Active Substance: LOSARTAN
  4. PROTONIX [Concomitant]
     Active Substance: PANTOPRAZOLE SODIUM
  5. MULTIVITAMIN (VITAMINS NOS) [Concomitant]
     Active Substance: VITAMINS
  6. GLIPIZIDE. [Concomitant]
     Active Substance: GLIPIZIDE
  7. SYNTHROID [Concomitant]
     Active Substance: LEVOTHYROXINE SODIUM
  8. CARVEDILOL (CARVEDILOL) [Concomitant]
     Active Substance: CARVEDILOL
  9. TORSEMIDE (TORSEMIDE) [Concomitant]

REACTIONS (4)
  - Diarrhoea [None]
  - Renal pain [None]
  - Gastroenteritis viral [None]
  - Fatigue [None]

NARRATIVE: CASE EVENT DATE: 2014
